FAERS Safety Report 9528080 (Version 1)
Quarter: 2013Q1

REPORT INFORMATION
  Report Type: Spontaneous
  Country: US (occurrence: None)
  Receive Date: 20130314
  Receipt Date: 20130314
  Transmission Date: 20140127
  Serious: No
  Sender: FDA-Public Use
  Company Number: 1212USA001276

PATIENT
  Age: 56 Year
  Sex: Female

DRUGS (10)
  1. VICTRELIS (BOCEPREVIR) CAPSULE [Suspect]
     Indication: HEPATITIS C
     Dosage: 4 CAPSULES, TID, ORAL?
     Route: 048
  2. PEGINTRON (PEGINTERFERON ALFA-2B) POWDER FOR INJECTION [Suspect]
     Dates: start: 20120916
  3. RIBAVIRIN (WARRICK) (RIBAVIRIN) [Concomitant]
  4. SYNTHROID (LEVOTHYROXINE SODIUM) [Concomitant]
  5. CLONAZEPAM (CLONAZEPAM) (CLONAZEPAM) [Concomitant]
  6. CENTRUM SILVER [Concomitant]
  7. CYANOCOBALAMIN (CYANOCOBALAMIN) [Concomitant]
  8. VITAMIN D [Concomitant]
  9. SELENIUM [Concomitant]
  10. NAPROXEN (NAPROXEN) [Concomitant]

REACTIONS (3)
  - Dry mouth [None]
  - Nasal congestion [None]
  - Product quality issue [None]
